FAERS Safety Report 5392562-5 (Version None)
Quarter: 2007Q3

REPORT INFORMATION
  Report Type: 
  Country: None (occurrence: None)
  Receive Date: 20070720
  Receipt Date: 20070711
  Transmission Date: 20080115
  Serious: Yes (Congenital Anomaly, Other)
  Sender: FDA-Public Use
  Company Number: GB-ABBOTT-05P-167-0317755-00

PATIENT
  Sex: Female

DRUGS (1)
  1. VALPROATE SODIUM [Suspect]
     Indication: DRUG EXPOSURE DURING PREGNANCY

REACTIONS (18)
  - AUTISM [None]
  - CONGENITAL ANOMALY [None]
  - CONGENITAL NOSE MALFORMATION [None]
  - DACRYOSTENOSIS CONGENITAL [None]
  - DEVELOPMENTAL DELAY [None]
  - DYSMORPHISM [None]
  - FOETAL ANTICONVULSANT SYNDROME [None]
  - FOOT DEFORMITY [None]
  - HAEMANGIOMA [None]
  - HAIR GROWTH ABNORMAL [None]
  - HETEROPHORIA [None]
  - HYPOTONIA [None]
  - LEARNING DISORDER [None]
  - LIGAMENT LAXITY [None]
  - MOTOR DYSFUNCTION [None]
  - SPEECH DISORDER DEVELOPMENTAL [None]
  - STRABISMUS [None]
  - WEIGHT DECREASED [None]
